FAERS Safety Report 15254847 (Version 1)
Quarter: 2018Q3

REPORT INFORMATION
  Report Type: Report from Study
  Country: CN (occurrence: CN)
  Receive Date: 20180808
  Receipt Date: 20180808
  Transmission Date: 20181010
  Serious: Yes (Death)
  Sender: FDA-Public Use
  Company Number: CN-MYLANLABS-2018M1059010

PATIENT
  Sex: Female

DRUGS (2)
  1. PACLITAXEL. [Suspect]
     Active Substance: PACLITAXEL
     Indication: OVARIAN CANCER RECURRENT
     Dosage: ON DAY 1
     Route: 042
  2. CARBOPLATIN. [Suspect]
     Active Substance: CARBOPLATIN
     Indication: OVARIAN CANCER RECURRENT
     Dosage: AT AN AREA UNDER THE CURVE OF 5 ON DAY 1 EVERY 3 WEEKS
     Route: 042

REACTIONS (2)
  - Respiratory tract infection [Fatal]
  - Neutropenia [Fatal]
